FAERS Safety Report 10052261 (Version 1)
Quarter: 2014Q2

REPORT INFORMATION
  Report Type: Spontaneous
  Country: US (occurrence: None)
  Receive Date: 20140401
  Receipt Date: 20140401
  Transmission Date: 20141212
  Serious: Yes (Life-Threatening, Hospitalization)
  Sender: FDA-Public Use
  Company Number: None

PATIENT
  Age: 60 Year
  Sex: Male

DRUGS (2)
  1. ALTESPLASE [Suspect]
     Indication: CEREBROVASCULAR ACCIDENT
     Dosage: 2 DOSES
     Route: 042
     Dates: start: 201310
  2. LISINOPRIL [Suspect]
     Indication: HYPERTENSION
     Dosage: PRIOR TO ADMISSION
     Route: 048

REACTIONS (1)
  - Angioedema [None]
